FAERS Safety Report 21625288 (Version 1)
Quarter: 2022Q4

REPORT INFORMATION
  Report Type: Report from Study
  Country: US (occurrence: US)
  Receive Date: 20221122
  Receipt Date: 20221122
  Transmission Date: 20230112
  Serious: Yes (Other)
  Sender: FDA-Public Use
  Company Number: US-ORPHANEU-2022005714

PATIENT

DRUGS (1)
  1. ISTURISA [Suspect]
     Active Substance: OSILODROSTAT PHOSPHATE
     Indication: Pituitary-dependent Cushing^s syndrome
     Dosage: UNK
     Dates: start: 202105

REACTIONS (5)
  - Diabetes mellitus [Unknown]
  - Weight decreased [Unknown]
  - Stress [Unknown]
  - Decreased appetite [Unknown]
  - Asthenia [Unknown]
